FAERS Safety Report 9701910 (Version 2)
Quarter: 2014Q1

REPORT INFORMATION
  Report Type: Report from Study
  Country: US (occurrence: US)
  Receive Date: 20131121
  Receipt Date: 20140106
  Transmission Date: 20141002
  Serious: Yes (Other)
  Sender: FDA-Public Use
  Company Number: US-ROCHE-1303828

PATIENT
  Sex: 0

DRUGS (2)
  1. RITUXIMAB [Suspect]
     Indication: NON-HODGKIN^S LYMPHOMA
     Dosage: ON DAYS 1 AND 22 OR DAYS 1,8,15 AND/OR 22 AS NECESSARY BASED ON SERUM RITUXIMAB LEVEL
     Route: 065
  2. DI-LEU16-IL20 [Suspect]
     Indication: NON-HODGKIN^S LYMPHOMA
     Dosage: ON DAYS 2,4,23 AND 25 OR WEEKLY FOR 4 WEEKS (DAYS 2,9,16, 23)
     Route: 042

REACTIONS (4)
  - Hyponatraemia [Unknown]
  - Hyperglycaemia [Unknown]
  - Herpes zoster [Unknown]
  - Electrocardiogram QT prolonged [Unknown]
